FAERS Safety Report 10020532 (Version 1)
Quarter: 2014Q1

REPORT INFORMATION
  Report Type: Spontaneous
  Country: US (occurrence: US)
  Receive Date: 20140319
  Receipt Date: 20140319
  Transmission Date: 20141002
  Serious: No
  Sender: FDA-Public Use
  Company Number: US-BIOGENIDEC-2014BI023070

PATIENT
  Age: 61 Year
  Sex: Female

DRUGS (4)
  1. TECFIDERA [Suspect]
     Indication: MULTIPLE SCLEROSIS
     Route: 048
  2. ESCITALOPRAM OXALATE [Concomitant]
  3. ALPRAZOLAM [Concomitant]
  4. ASPIRIN EC [Concomitant]

REACTIONS (2)
  - Back pain [Unknown]
  - Muscle spasms [Unknown]
